FAERS Safety Report 8990851 (Version 1)
Quarter: 2012Q4

REPORT INFORMATION
  Report Type: Spontaneous
  Country: US (occurrence: None)
  Receive Date: 20121226
  Receipt Date: 20121226
  Transmission Date: 20130627
  Serious: Yes (Other)
  Sender: FDA-Public Use
  Company Number: None

PATIENT
  Age: 48 Year
  Sex: Male
  Weight: 85.28 kg

DRUGS (1)
  1. CREST PRO-HEALTH COMPLETE (CLEAN MINT) [Suspect]
     Indication: DENTAL CARE
     Dosage: 10ml twice daily
     Dates: start: 20121219, end: 20121221

REACTIONS (2)
  - Salivary gland enlargement [None]
  - Product quality issue [None]
